FAERS Safety Report 16630610 (Version 1)
Quarter: 2019Q3

REPORT INFORMATION
  Report Type: Spontaneous
  Country: US (occurrence: US)
  Receive Date: 20190613
  Receipt Date: 20190613
  Transmission Date: 20191004
  Serious: Yes (Hospitalization)
  Sender: FDA-Public Use
  Company Number: None

PATIENT
  Age: 80 Year
  Sex: Male

DRUGS (9)
  1. SMZ/TMP DS [Concomitant]
     Active Substance: SULFAMETHOXAZOLE\TRIMETHOPRIM
  2. ALLOPURINOL. [Concomitant]
     Active Substance: ALLOPURINOL
  3. TAMSULOSIN [Concomitant]
     Active Substance: TAMSULOSIN
  4. INSULIN [Concomitant]
     Active Substance: INSULIN NOS
  5. FERROCITE [Concomitant]
     Active Substance: FERROUS FUMARATE
  6. POT CITRATE [Concomitant]
     Active Substance: POTASSIUM CITRATE
  7. MEMANTINE. [Concomitant]
     Active Substance: MEMANTINE
  8. METHOTREXATE. [Concomitant]
     Active Substance: METHOTREXATE
  9. ESBRIET [Suspect]
     Active Substance: PIRFENIDONE
     Indication: IDIOPATHIC PULMONARY FIBROSIS
     Route: 048
     Dates: start: 20151006

REACTIONS (1)
  - Urinary tract infection [None]

NARRATIVE: CASE EVENT DATE: 20190609
